FAERS Safety Report 8929219 (Version 1)
Quarter: 2012Q4

REPORT INFORMATION
  Report Type: Spontaneous
  Country: CH (occurrence: None)
  Receive Date: 20121119
  Receipt Date: 20121119
  Transmission Date: 20130627
  Serious: Yes (Hospitalization)
  Sender: FDA-Public Use
  Company Number: SIM_00420_2012

PATIENT
  Age: 91 Year
  Sex: Male

DRUGS (1)
  1. KREISLAUFBESCHWERDEN GLOBULI [Suspect]
     Indication: DIZZINESS
     Route: 048
     Dates: start: 20121003, end: 20121003

REACTIONS (12)
  - Nausea [None]
  - Dizziness [None]
  - Muscular weakness [None]
  - Eye movement disorder [None]
  - Hypertension [None]
  - Normochromic normocytic anaemia [None]
  - Blood sodium decreased [None]
  - Blood glucose increased [None]
  - Nystagmus [None]
  - Product formulation issue [None]
  - Dehydration [None]
  - Memory impairment [None]
